FAERS Safety Report 6248305-6 (Version None)
Quarter: 2009Q2

REPORT INFORMATION
  Report Type: 
  Country: None (occurrence: None)
  Receive Date: 20090629
  Receipt Date: 20090616
  Transmission Date: 20091009
  Serious: Yes (Hospitalization)
  Sender: FDA-Public Use
  Company Number: PHHY2009JP21679

PATIENT
  Age: 53 Year
  Sex: Male

DRUGS (2)
  1. RITALIN [Suspect]
     Indication: DEPRESSION
     Route: 048
  2. VEGETAMIN A [Suspect]
     Route: 048

REACTIONS (5)
  - ALTERED STATE OF CONSCIOUSNESS [None]
  - DRUG TOXICITY [None]
  - HYPERHIDROSIS [None]
  - HYPERTENSION [None]
  - LIVER DISORDER [None]
